FAERS Safety Report 7779259-9 (Version None)
Quarter: 2011Q3

REPORT INFORMATION
  Report Type: 
  Country: None (occurrence: None)
  Receive Date: 20110926
  Receipt Date: 20110921
  Transmission Date: 20111222
  Serious: Yes (Death)
  Sender: FDA-Public Use
  Company Number: AU-ASTRAZENECA-2011SE56756

PATIENT
  Age: 80 Year
  Sex: Male

DRUGS (4)
  1. NITROGLYCERIN [Suspect]
     Dosage: 10 MICROGRAM PER MINUTE
     Route: 042
     Dates: start: 20110813, end: 20110813
  2. ROCURONIUM BROMIDE [Suspect]
     Route: 042
     Dates: start: 20110813, end: 20110813
  3. NOREPINEPHRINE BITARTRATE [Suspect]
     Dosage: 15 MICROGRAM PER MINUTE
     Route: 042
     Dates: start: 20110813, end: 20110813
  4. PROPOFOL [Suspect]
     Dosage: 200 MG PER HOUR
     Route: 042
     Dates: start: 20110813, end: 20110813

REACTIONS (2)
  - HYPOTENSION [None]
  - PULSELESS ELECTRICAL ACTIVITY [None]
